FAERS Safety Report 21815599 (Version 1)
Quarter: 2023Q1

REPORT INFORMATION
  Report Type: Spontaneous
  Country: US (occurrence: None)
  Receive Date: 20230103
  Receipt Date: 20230103
  Transmission Date: 20230417
  Serious: No
  Sender: FDA-Public Use
  Company Number: None

PATIENT
  Sex: Male
  Weight: 114.76 kg

DRUGS (33)
  1. BEXAROTENE [Suspect]
     Active Substance: BEXAROTENE
     Indication: Cutaneous T-cell lymphoma
     Dosage: 225 MG DAILY ORAL?
     Route: 048
     Dates: start: 202203
  2. BEXAROTENE [Suspect]
     Active Substance: BEXAROTENE
     Indication: Nodule
  3. ALBUTEROL [Concomitant]
     Active Substance: ALBUTEROL
  4. ATORVASTATIN [Concomitant]
     Active Substance: ATORVASTATIN
  5. BENZOYL PEROXIDE [Concomitant]
     Active Substance: BENZOYL PEROXIDE
  6. BRILINTA [Concomitant]
     Active Substance: TICAGRELOR
  7. CALCIUM\VITAMIN D [Concomitant]
     Active Substance: CALCIUM\VITAMIN D
  8. CITALOPRAM [Concomitant]
     Active Substance: CITALOPRAM HYDROBROMIDE
  9. CLOBETASOL PROPIONATE E [Concomitant]
  10. DULOXETINE [Concomitant]
     Active Substance: DULOXETINE
  11. DILTIAZEM [Concomitant]
     Active Substance: DILTIAZEM
  12. ATROPINE SULFATE\DIPHENOXYLATE HYDROCHLORIDE [Concomitant]
     Active Substance: ATROPINE SULFATE\DIPHENOXYLATE HYDROCHLORIDE
  13. DOCUSATE [Concomitant]
     Active Substance: DOCUSATE
  14. ELIQUIS [Concomitant]
     Active Substance: APIXABAN
  15. FUROSEMIDE [Concomitant]
     Active Substance: FUROSEMIDE
  16. HUMALOG [Concomitant]
     Active Substance: INSULIN LISPRO
  17. HYDRALAZINE [Concomitant]
     Active Substance: HYDRALAZINE HYDROCHLORIDE
  18. HYDROXYZINE [Concomitant]
     Active Substance: HYDROXYZINE HYDROCHLORIDE
  19. HYDROCHLOROTHIAZIDE [Concomitant]
     Active Substance: HYDROCHLOROTHIAZIDE
  20. INTERFERON ALFA-2B [Concomitant]
     Active Substance: INTERFERON ALFA-2B
  21. LIDOCAINE [Concomitant]
     Active Substance: LIDOCAINE
  22. LOPERAMIDE [Concomitant]
     Active Substance: LOPERAMIDE
  23. LORATADINE [Concomitant]
     Active Substance: LORATADINE
  24. MAGNESIUM OXIDE [Concomitant]
     Active Substance: MAGNESIUM OXIDE
  25. METFORMIN [Concomitant]
     Active Substance: METFORMIN HYDROCHLORIDE
  26. NOVOLIN NOS [Concomitant]
     Active Substance: INSULIN HUMAN
  27. PERCOCET [Concomitant]
     Active Substance: ACETAMINOPHEN\OXYCODONE HYDROCHLORIDE
  28. PREGABALIN [Concomitant]
     Active Substance: PREGABALIN
  29. TAMSULOSIN [Concomitant]
     Active Substance: TAMSULOSIN
  30. TRAZODONE [Concomitant]
     Active Substance: TRAZODONE HYDROCHLORIDE
  31. TRADJENTA [Concomitant]
     Active Substance: LINAGLIPTIN
  32. TRIAMCINOLONE [Concomitant]
     Active Substance: TRIAMCINOLONE
  33. VITAMIN B2 [Suspect]
     Active Substance: RIBOFLAVIN

REACTIONS (2)
  - Monoplegia [None]
  - Intentional product use issue [None]
